FAERS Safety Report 9636614 (Version 4)
Quarter: 2013Q4

REPORT INFORMATION
  Report Type: Spontaneous
  Country: GB (occurrence: GB)
  Receive Date: 20131021
  Receipt Date: 20131106
  Transmission Date: 20140711
  Serious: Yes (Other)
  Sender: FDA-Public Use
  Company Number: GB-009507513-1310GBR006079

PATIENT
  Age: 16 Year
  Sex: Female

DRUGS (1)
  1. NEXPLANON [Suspect]
     Indication: CONTRACEPTION
     Dosage: UNK
     Route: 058
     Dates: start: 20110609, end: 20131007

REACTIONS (4)
  - Abortion spontaneous [Unknown]
  - Device failure [Unknown]
  - Haemorrhage [Recovered/Resolved]
  - Unintended pregnancy [Recovered/Resolved]
